FAERS Safety Report 9892538 (Version 1)
Quarter: 2014Q1

REPORT INFORMATION
  Report Type: Report from Study
  Country: KR (occurrence: KR)
  Receive Date: 20140212
  Receipt Date: 20140212
  Transmission Date: 20141002
  Serious: Yes (Other)
  Sender: FDA-Public Use
  Company Number: KR-BAXTER-2014BAX007615

PATIENT
  Sex: 0

DRUGS (4)
  1. ENDOXAN INJ 500MG [Suspect]
     Indication: PLASMA CELL MYELOMA
     Route: 042
  2. DEXAMETHASONE [Suspect]
     Indication: PLASMA CELL MYELOMA
     Route: 042
  3. ETOPOSIDE [Suspect]
     Indication: PLASMA CELL MYELOMA
     Route: 042
  4. CISPLATIN [Suspect]
     Indication: PLASMA CELL MYELOMA
     Route: 042

REACTIONS (1)
  - Disease progression [Unknown]
